FAERS Safety Report 8402172-0 (Version None)
Quarter: 2012Q2

REPORT INFORMATION
  Report Type: 
  Country: None (occurrence: None)
  Receive Date: 20120525
  Receipt Date: 20120521
  Transmission Date: 20120825
  Serious: Yes (Hospitalization, Disabling)
  Sender: FDA-Public Use
  Company Number: 2012SP020895

PATIENT
  Age: 59 Year
  Sex: Male
  Weight: 58 kg

DRUGS (5)
  1. VIRAFERONPEG [Suspect]
     Indication: HEPATITIS C
     Dosage: 80 MCG, QW
     Dates: start: 20110825
  2. ISENTRESS [Concomitant]
  3. VICTRELIS (SCH-503034) [Suspect]
     Indication: HEPATITIS C
     Dosage: 800 MG, TID
     Dates: start: 20110927
  4. REBETOL [Suspect]
     Indication: HEPATITIS C
     Dosage: 800 MG, QD
     Dates: start: 20110825
  5. TRUVADA [Concomitant]

REACTIONS (2)
  - ANAEMIA [None]
  - PROSTATITIS [None]
